FAERS Safety Report 11460149 (Version 2)
Quarter: 2015Q4

REPORT INFORMATION
  Report Type: Spontaneous
  Country: US (occurrence: US)
  Receive Date: 20150904
  Receipt Date: 20151224
  Transmission Date: 20160304
  Serious: No
  Sender: FDA-Public Use
  Company Number: US-GLAXOSMITHKLINE-US2015112595

PATIENT
  Sex: Female
  Weight: 84.81 kg

DRUGS (1)
  1. LAMICTAL [Suspect]
     Active Substance: LAMOTRIGINE
     Indication: AFFECTIVE DISORDER
     Dosage: 150 MG, 1D
     Route: 065
     Dates: start: 20140805, end: 20150715

REACTIONS (1)
  - Exposure during pregnancy [Unknown]
